FAERS Safety Report 9341224 (Version 2)
Quarter: 2013Q3

REPORT INFORMATION
  Report Type: Spontaneous
  Country: JP (occurrence: JP)
  Receive Date: 20130611
  Receipt Date: 20130705
  Transmission Date: 20140515
  Serious: Yes (Other)
  Sender: FDA-Public Use
  Company Number: JP-ROCHE-1235334

PATIENT
  Age: 72 Year
  Sex: 0

DRUGS (2)
  1. DENOSINE [Suspect]
     Indication: PRODUCT USED FOR UNKNOWN INDICATION
     Route: 042
  2. NEORAL [Concomitant]
     Route: 048

REACTIONS (1)
  - Altered state of consciousness [Recovering/Resolving]
